FAERS Safety Report 5618629-1 (Version None)
Quarter: 2008Q1

REPORT INFORMATION
  Report Type: 
  Country: None (occurrence: None)
  Receive Date: 20080205
  Receipt Date: 20080205
  Transmission Date: 20080703
  Serious: Yes (Death, Hospitalization)
  Sender: FDA-Public Use
  Company Number: None

PATIENT

DRUGS (3)
  1. HEPARIN LOCK-FLUSH [Suspect]
     Indication: INFECTION
     Dosage: 5 ML 3 TO 4 TIMES DAILY, INTRAVENOUS (NOT OTHERWISE SPECIFIED)
     Route: 042
     Dates: start: 20071129, end: 20071221
  2. HEPARIN LOCK-FLUSH [Suspect]
     Indication: INFECTION PROPHYLAXIS
     Dosage: 5 ML 3 TO 4 TIMES DAILY, INTRAVENOUS (NOT OTHERWISE SPECIFIED)
     Route: 042
     Dates: start: 20071129, end: 20071221
  3. SODIUM CHLORIDE INJ [Suspect]

REACTIONS (4)
  - POOR QUALITY DRUG ADMINISTERED [None]
  - SEPSIS [None]
  - SERRATIA INFECTION [None]
  - THERAPEUTIC PRODUCT CONTAMINATION [None]
